FAERS Safety Report 20173839 (Version 1)
Quarter: 2021Q4

REPORT INFORMATION
  Report Type: Spontaneous
  Country: US (occurrence: US)
  Receive Date: 20211213
  Receipt Date: 20211213
  Transmission Date: 20220304
  Serious: No
  Sender: FDA-Public Use
  Company Number: US-AUROBINDO-AUR-APL-2021-006517

PATIENT
  Sex: Male
  Weight: 74.3 kg

DRUGS (9)
  1. MIRTAZAPINE [Interacting]
     Active Substance: MIRTAZAPINE
     Indication: Sleep disorder
     Dosage: UNK, 2-3 MILLIGRAMS
     Route: 065
  2. MIRTAZAPINE [Interacting]
     Active Substance: MIRTAZAPINE
     Dosage: UNK, 7.5 TO 15 MILLIGRAMS
     Route: 065
     Dates: start: 20201113, end: 20210207
  3. CANNABIDIOL\HERBALS [Interacting]
     Active Substance: CANNABIDIOL\HERBALS
     Indication: Feeling of relaxation
     Dosage: UNK, TWO TIMES A DAY
     Route: 065
  4. CASEIN\DIETARY SUPPLEMENT\THEANINE [Interacting]
     Active Substance: CASEIN\DIETARY SUPPLEMENT\THEANINE
     Indication: Product used for unknown indication
     Dosage: UNK
     Route: 065
  5. GLUSTAR [Concomitant]
     Indication: Product used for unknown indication
     Dosage: UNK
     Route: 065
  6. MAGNESIUM [Concomitant]
     Active Substance: MAGNESIUM
     Indication: Product used for unknown indication
     Dosage: UNK
     Route: 065
  7. VITAMINS [Concomitant]
     Active Substance: VITAMINS
     Indication: Product used for unknown indication
     Dosage: UNK
     Route: 065
  8. Omega [Concomitant]
     Indication: Product used for unknown indication
     Dosage: UNK
     Route: 065
  9. SODIUM [Concomitant]
     Active Substance: SODIUM
     Indication: Product used for unknown indication
     Dosage: UNK
     Route: 065

REACTIONS (6)
  - Blood sodium abnormal [Unknown]
  - Illness [Not Recovered/Not Resolved]
  - Abdominal discomfort [Unknown]
  - Drug interaction [Unknown]
  - Drug ineffective for unapproved indication [Unknown]
  - Wrong technique in product usage process [Unknown]
